FAERS Safety Report 17236571 (Version 1)
Quarter: 2020Q1

REPORT INFORMATION
  Report Type: Spontaneous
  Country: CN (occurrence: CN)
  Receive Date: 20200106
  Receipt Date: 20200106
  Transmission Date: 20200409
  Serious: Yes (Hospitalization)
  Sender: FDA-Public Use
  Company Number: NVSC2019CN085348

PATIENT
  Age: 81 Year
  Sex: Male
  Weight: 68 kg

DRUGS (6)
  1. PANTOPRAZOLE [Concomitant]
     Active Substance: PANTOPRAZOLE
     Indication: ABDOMINAL DISCOMFORT
     Dosage: 40 MG, QD
     Route: 048
     Dates: start: 20190813, end: 20191231
  2. SACUBITRIL,VALSARTAN [Suspect]
     Active Substance: SACUBITRIL\VALSARTAN
     Indication: HYPERTENSION
     Dosage: 50 MG, BID
     Route: 048
     Dates: start: 20191015, end: 20191216
  3. ASPIRIN. [Concomitant]
     Active Substance: ASPIRIN
     Indication: CEREBRAL INFARCTION
     Dosage: 100 MG, QD
     Route: 048
     Dates: start: 20190813, end: 20191231
  4. FUROSEMIDE. [Suspect]
     Active Substance: FUROSEMIDE
     Indication: HYPERTENSION
     Dosage: 20 MG, QD
     Route: 048
     Dates: start: 20191011, end: 20191216
  5. CLOPIDOGREL [Concomitant]
     Active Substance: CLOPIDOGREL BISULFATE
     Indication: HYPERTENSION
     Dosage: 75 MG, QD
     Route: 048
     Dates: start: 20190813, end: 20191231
  6. SPIRONOLACTONE. [Suspect]
     Active Substance: SPIRONOLACTONE
     Indication: HYPERTENSION
     Dosage: 20 MG, QD
     Route: 048
     Dates: start: 20191011, end: 20191216

REACTIONS (2)
  - Rash [Recovering/Resolving]
  - Pruritus [Recovering/Resolving]

NARRATIVE: CASE EVENT DATE: 20191213
